FAERS Safety Report 23434548 (Version 1)
Quarter: 2024Q1

REPORT INFORMATION
  Report Type: Spontaneous
  Country: US (occurrence: US)
  Receive Date: 20240123
  Receipt Date: 20240123
  Transmission Date: 20240410
  Serious: No
  Sender: FDA-Public Use
  Company Number: US-NOVOPROD-1124259

PATIENT
  Sex: Female

DRUGS (1)
  1. WEGOVY [Suspect]
     Active Substance: SEMAGLUTIDE
     Indication: Product used for unknown indication
     Dosage: 1 MG QW
     Route: 058
     Dates: start: 20230904

REACTIONS (3)
  - Increased appetite [Not Recovered/Not Resolved]
  - Injection site discharge [Unknown]
  - Device failure [Recovered/Resolved]
